FAERS Safety Report 8091644-7 (Version None)
Quarter: 2012Q1

REPORT INFORMATION
  Report Type: 
  Country: None (occurrence: None)
  Receive Date: 20120125
  Receipt Date: 20120110
  Transmission Date: 20120608
  Serious: Yes (Hospitalization)
  Sender: FDA-Public Use
  Company Number: 2012HGS-003124

PATIENT
  Age: 51 Year
  Sex: Female
  Weight: 49.8957 kg

DRUGS (5)
  1. PREVACID (LANSOPRAZOLE) (LANSOPRAZOLE) [Concomitant]
  2. BENLYSTA [Suspect]
     Indication: SYSTEMIC LUPUS ERYTHEMATOSUS
     Dosage: 620 MG, 1 IN 28 D, INTRAVENOUS DRIP
     Route: 041
     Dates: start: 20110616
  3. PLAQUENIL (HYDROXYCHLOROQUINE PHOSPHATE) (HYDROXYCHLOROQUINE PHOSPHATE [Concomitant]
  4. WELLBUTRIN SR (BUPROPION HYDROCHLORIDE) (BUPROPION HYDROCHLORIDE) [Concomitant]
  5. ESTRADIOL PATCH (ESTRADIOL) (ESTRADIOL) [Concomitant]

REACTIONS (5)
  - APPENDICITIS PERFORATED [None]
  - ABDOMINAL PAIN [None]
  - FEELING DRUNK [None]
  - INFUSION RELATED REACTION [None]
  - DIZZINESS [None]
